FAERS Safety Report 9391021 (Version 3)
Quarter: 2013Q3

REPORT INFORMATION
  Report Type: Spontaneous
  Country: IT (occurrence: IT)
  Receive Date: 20130709
  Receipt Date: 20130920
  Transmission Date: 20140515
  Serious: Yes (Hospitalization)
  Sender: FDA-Public Use
  Company Number: IT-BAYER-2013-082493

PATIENT
  Age: 67 Year
  Sex: Male
  Weight: 67.12 kg

DRUGS (4)
  1. NEXAVAR [Suspect]
     Indication: HEPATIC CANCER
     Dosage: DAILY DOSE 400 MG
     Route: 048
     Dates: start: 20121120, end: 20130212
  2. NEXAVAR [Suspect]
     Indication: HEPATIC CANCER
     Dosage: UNK
     Dates: start: 2013
  3. ESOPRAL [Concomitant]
     Dosage: DAILY DOSE 40 MG
     Dates: start: 201211, end: 20130212
  4. BEMIPARIN [Concomitant]
     Dosage: DAILY DOSE 5000 IU
     Dates: start: 201211, end: 20130212

REACTIONS (2)
  - Pneumonia [Recovered/Resolved]
  - Ankle fracture [Recovered/Resolved]
